FAERS Safety Report 18065632 (Version 1)
Quarter: 2020Q3

REPORT INFORMATION
  Report Type: Spontaneous
  Country: FR (occurrence: FR)
  Receive Date: 20200724
  Receipt Date: 20200724
  Transmission Date: 20201103
  Serious: Yes (Hospitalization)
  Sender: FDA-Public Use
  Company Number: NVSC2020FR204316

PATIENT
  Age: 20 Year
  Sex: Female
  Weight: 79 kg

DRUGS (3)
  1. PARACETAMOL [Suspect]
     Active Substance: ACETAMINOPHEN
     Indication: TOXICITY TO VARIOUS AGENTS
     Dosage: 24 G, UNKNOWN (1 TOTAL)
     Route: 048
     Dates: start: 20200712
  2. LOXAPAC [Suspect]
     Active Substance: LOXAPINE
     Indication: TOXICITY TO VARIOUS AGENTS
     Dosage: 2.25 G, UNKNOWN (1 TOTAL), ( SOLUTION BUVABLE)
     Route: 048
     Dates: start: 20200712
  3. PRAZEPAM [Suspect]
     Active Substance: PRAZEPAM
     Indication: TOXICITY TO VARIOUS AGENTS
     Dosage: 200 MG, UNKNOWN (1 TOTAL)
     Route: 048
     Dates: start: 20200712

REACTIONS (3)
  - Somnolence [Recovered/Resolved]
  - Metabolic acidosis [Recovering/Resolving]
  - Hypokalaemia [Recovering/Resolving]

NARRATIVE: CASE EVENT DATE: 20200712
